FAERS Safety Report 16160988 (Version 1)
Quarter: 2019Q2

REPORT INFORMATION
  Report Type: Spontaneous
  Country: US (occurrence: US)
  Receive Date: 20190405
  Receipt Date: 20190405
  Transmission Date: 20190711
  Serious: No
  Sender: FDA-Public Use
  Company Number: PHHY2019US075321

PATIENT
  Sex: Female

DRUGS (1)
  1. BION TEARS [Suspect]
     Active Substance: DEXTRAN 70\HYPROMELLOSE 2910 (4000 MPA.S)
     Indication: DRY EYE
     Dosage: UNK
     Route: 065

REACTIONS (3)
  - Drug ineffective [Unknown]
  - Lacrimation increased [Not Recovered/Not Resolved]
  - Ocular discomfort [Not Recovered/Not Resolved]
